FAERS Safety Report 5485472-6 (Version None)
Quarter: 2007Q4

REPORT INFORMATION
  Report Type: 
  Country: None (occurrence: None)
  Receive Date: 20071011
  Receipt Date: 20070927
  Transmission Date: 20080405
  Serious: Yes (Other)
  Sender: FDA-Public Use
  Company Number: CERZ-11895

PATIENT
  Sex: Male
  Weight: 22 kg

DRUGS (1)
  1. CEREZYME [Suspect]
     Indication: GAUCHER'S DISEASE
     Dosage: 55 U/KG Q2WKS IV
     Route: 042
     Dates: start: 20040303

REACTIONS (1)
  - ANAPHYLACTIC REACTION [None]
